FAERS Safety Report 9287331 (Version 1)
Quarter: 2013Q2

REPORT INFORMATION
  Report Type: Report from Study
  Country: EG (occurrence: EG)
  Receive Date: 20130514
  Receipt Date: 20130514
  Transmission Date: 20140414
  Serious: Yes (Other)
  Sender: FDA-Public Use
  Company Number: EG-ROCHE-1223644

PATIENT
  Age: 49 Year
  Sex: Female

DRUGS (4)
  1. TRASTUZUMAB [Suspect]
     Indication: BREAST CANCER METASTATIC
     Route: 041
     Dates: start: 20110604, end: 20120522
  2. XELODA [Concomitant]
     Route: 048
     Dates: start: 20110604
  3. ZOMETA [Concomitant]
     Route: 042
     Dates: start: 20110305, end: 20110906
  4. PAMIDRONATE [Concomitant]
     Route: 042
     Dates: start: 20111004

REACTIONS (1)
  - Pulmonary mass [Not Recovered/Not Resolved]
